FAERS Safety Report 7073685-1 (Version None)
Quarter: 2010Q4

REPORT INFORMATION
  Report Type: 
  Country: None (occurrence: None)
  Receive Date: 20101029
  Receipt Date: 20100730
  Transmission Date: 20110411
  Serious: No
  Sender: FDA-Public Use
  Company Number: A0873218A

PATIENT
  Age: 56 Year
  Sex: Female

DRUGS (3)
  1. ADVAIR DISKUS 100/50 [Suspect]
     Indication: ASTHMA
     Dosage: 1PUFF TWICE PER DAY
     Route: 055
     Dates: start: 20100315
  2. PREMPRO [Concomitant]
  3. SIMVASTATIN [Concomitant]

REACTIONS (2)
  - DYSPHONIA [None]
  - OROPHARYNGEAL PAIN [None]
